FAERS Safety Report 19505255 (Version 1)
Quarter: 2021Q3

REPORT INFORMATION
  Report Type: Spontaneous
  Country: BE (occurrence: BE)
  Receive Date: 20210708
  Receipt Date: 20210708
  Transmission Date: 20211014
  Serious: Yes (Other)
  Sender: FDA-Public Use
  Company Number: BE-009507513-2107BEL000416

PATIENT

DRUGS (2)
  1. TEMODAL [Suspect]
     Active Substance: TEMOZOLOMIDE
     Indication: GLIOBLASTOMA
     Dosage: 27 CYCLES
     Route: 048
     Dates: start: 2015
  2. TEMODAL [Suspect]
     Active Substance: TEMOZOLOMIDE
     Dosage: 3 CYCLES
     Route: 048
     Dates: start: 202008

REACTIONS (1)
  - Glioblastoma [Unknown]

NARRATIVE: CASE EVENT DATE: 2020
